FAERS Safety Report 12992749 (Version 1)
Quarter: 2016Q4

REPORT INFORMATION
  Report Type: Spontaneous
  Country: SE (occurrence: SE)
  Receive Date: 20161202
  Receipt Date: 20161202
  Transmission Date: 20170207
  Serious: Yes (Hospitalization)
  Sender: FDA-Public Use
  Company Number: SE-ASTRAZENECA-2016SF25961

PATIENT
  Sex: Male

DRUGS (2)
  1. ATACAND [Suspect]
     Active Substance: CANDESARTAN CILEXETIL
     Dosage: ONE HALF TABLET
     Route: 048
  2. ATACAND [Suspect]
     Active Substance: CANDESARTAN CILEXETIL
     Route: 048

REACTIONS (6)
  - Muscular weakness [Unknown]
  - Eczema [Unknown]
  - Dyspnoea [Unknown]
  - Skin discolouration [Recovering/Resolving]
  - Mental disorder [Unknown]
  - Memory impairment [Unknown]
